FAERS Safety Report 16851116 (Version 1)
Quarter: 2019Q3

REPORT INFORMATION
  Report Type: Spontaneous
  Country: US (occurrence: US)
  Receive Date: 20190925
  Receipt Date: 20190925
  Transmission Date: 20191005
  Serious: No
  Sender: FDA-Public Use
  Company Number: US-ENDO PHARMACEUTICALS INC-2019-105243

PATIENT
  Age: 78 Year
  Sex: Female

DRUGS (4)
  1. CBD OIL [Concomitant]
     Active Substance: CANNABIDIOL\HERBALS
  2. PEPCID                             /00305201/ [Concomitant]
     Active Substance: ALUMINUM HYDROXIDE\MAGNESIUM CARBONATE
  3. CHOLESTYRAMINE. [Suspect]
     Active Substance: CHOLESTYRAMINE
     Dosage: 1 PACKET, DAILY
     Route: 065
     Dates: start: 20190522, end: 20190526
  4. CHOLESTYRAMINE. [Suspect]
     Active Substance: CHOLESTYRAMINE
     Indication: DIARRHOEA
     Dosage: 1 PACK, BID (1 PACKET MID MORNING AND 1 MID AFTERNOON)
     Route: 065
     Dates: start: 20190307, end: 20190521

REACTIONS (4)
  - Therapeutic response unexpected [Unknown]
  - Off label use [Recovered/Resolved]
  - Headache [Not Recovered/Not Resolved]
  - Constipation [Recovered/Resolved]

NARRATIVE: CASE EVENT DATE: 20190307
